FAERS Safety Report 13690502 (Version 2)
Quarter: 2017Q3

REPORT INFORMATION
  Report Type: Spontaneous
  Country: IT (occurrence: IT)
  Receive Date: 20170626
  Receipt Date: 20170724
  Transmission Date: 20171127
  Serious: Yes (Hospitalization)
  Sender: FDA-Public Use
  Company Number: PHHY2017IT090219

PATIENT
  Age: 41 Year
  Sex: Female

DRUGS (4)
  1. CARBOLITHIUM [Concomitant]
     Active Substance: LITHIUM CARBONATE
     Indication: PRODUCT USED FOR UNKNOWN INDICATION
     Route: 065
  2. QUETIAPINE. [Concomitant]
     Active Substance: QUETIAPINE
     Indication: PRODUCT USED FOR UNKNOWN INDICATION
     Route: 065
  3. ESCITALOPRAM [Suspect]
     Active Substance: ESCITALOPRAM OXALATE
     Indication: DEPRESSION
     Dosage: 6 DF, UNK
     Route: 048
     Dates: start: 20170430, end: 20170430
  4. LORAZEPAM. [Suspect]
     Active Substance: LORAZEPAM
     Indication: ANXIETY
     Dosage: 10 ML, UNK
     Route: 048
     Dates: start: 20170430, end: 20170430

REACTIONS (5)
  - Sopor [Recovered/Resolved]
  - Slow speech [Recovered/Resolved]
  - Electrocardiogram QT prolonged [Recovered/Resolved]
  - Intentional self-injury [Recovered/Resolved]
  - Drug abuse [Recovered/Resolved]

NARRATIVE: CASE EVENT DATE: 20170430
